FAERS Safety Report 7049402-8 (Version None)
Quarter: 2010Q4

REPORT INFORMATION
  Report Type: 
  Country: None (occurrence: None)
  Receive Date: 20101018
  Receipt Date: 20101011
  Transmission Date: 20110411
  Serious: Yes (Death, Other)
  Sender: FDA-Public Use
  Company Number: JP-ROCHE-733127

PATIENT
  Sex: Female

DRUGS (4)
  1. TRASTUZUMAB [Suspect]
     Dosage: INITIAL DOSE
     Route: 065
  2. TRASTUZUMAB [Suspect]
     Route: 065
  3. TRASTUZUMAB [Suspect]
     Dosage: AFTER SURGERY
     Route: 065
  4. TAXOTERE [Suspect]
     Route: 065

REACTIONS (8)
  - DEATH [None]
  - DIASTOLIC DYSFUNCTION [None]
  - FATIGUE [None]
  - FEBRILE NEUTROPENIA [None]
  - GASTROINTESTINAL PERFORATION [None]
  - LEUKOPENIA [None]
  - NAUSEA [None]
  - NEUTROPENIA [None]
